FAERS Safety Report 5533999-0 (Version None)
Quarter: 2007Q4

REPORT INFORMATION
  Report Type: 
  Country: None (occurrence: None)
  Receive Date: 20071130
  Receipt Date: 20071116
  Transmission Date: 20080405
  Serious: Yes (Hospitalization, Other)
  Sender: FDA-Public Use
  Company Number: 020743

PATIENT
  Age: 78 Year
  Sex: Female

DRUGS (6)
  1. WARFARIN SODIUM [Suspect]
     Indication: ATRIAL FLUTTER
     Dosage: 3 MG, QD, ORAL; 5 MG, QD, ORAL
     Route: 048
     Dates: start: 20070515, end: 20070601
  2. WARFARIN SODIUM [Suspect]
     Indication: ATRIAL FLUTTER
     Dosage: 3 MG, QD, ORAL; 5 MG, QD, ORAL
     Route: 048
     Dates: start: 20070601
  3. FLECAINIDE ACETATE [Suspect]
     Dosage: 50 MG
     Dates: start: 20070609, end: 20070615
  4. CIPROFLOXACIN [Concomitant]
  5. LUMIGAN [Concomitant]
  6. METOPROLOL [Suspect]
     Indication: TACHYCARDIA
     Dosage: 50 MG QD ORAL
     Route: 048
     Dates: start: 20070515

REACTIONS (9)
  - CARDIAC ABLATION [None]
  - DRUG INTERACTION [None]
  - DYSPNOEA [None]
  - FATIGUE [None]
  - HEART RATE DECREASED [None]
  - HYPOTENSION [None]
  - PULMONARY OEDEMA [None]
  - TACHYCARDIA [None]
  - VISUAL ACUITY REDUCED [None]
